FAERS Safety Report 24323387 (Version 1)
Quarter: 2024Q3

REPORT INFORMATION
  Report Type: Spontaneous
  Country: AU (occurrence: AU)
  Receive Date: 20240916
  Receipt Date: 20240916
  Transmission Date: 20241017
  Serious: Yes (Other)
  Sender: PFIZER
  Company Number: AU-PFIZER INC-PV202400119611

PATIENT
  Age: 37 Year
  Sex: Male
  Weight: 73 kg

DRUGS (3)
  1. INFLIXIMAB [Suspect]
     Active Substance: INFLIXIMAB
     Indication: Crohn^s disease
     Dosage: UNK
     Dates: start: 202301
  2. INFLIXIMAB [Suspect]
     Active Substance: INFLIXIMAB
     Dosage: 10 MG/KG
     Dates: start: 202401
  3. METHOTREXATE SODIUM [Suspect]
     Active Substance: METHOTREXATE SODIUM
     Dosage: UNK
     Route: 048

REACTIONS (3)
  - Drug level decreased [Unknown]
  - Condition aggravated [Unknown]
  - Faecal calprotectin increased [Unknown]
